FAERS Safety Report 5924843-8 (Version None)
Quarter: 2008Q4

REPORT INFORMATION
  Report Type: 
  Country: None (occurrence: None)
  Receive Date: 20081017
  Receipt Date: 20081017
  Transmission Date: 20090506
  Serious: Yes (Hospitalization)
  Sender: FDA-Public Use
  Company Number: None

PATIENT
  Age: 45 Year
  Sex: Female
  Weight: 75.7507 kg

DRUGS (1)
  1. LISINOPRIL [Suspect]
     Indication: BLOOD PRESSURE
     Dosage: 30 1 EVERY DAY PO
     Route: 048
     Dates: start: 20080811, end: 20080812

REACTIONS (7)
  - ABDOMINAL DISCOMFORT [None]
  - CHROMATOPSIA [None]
  - DIZZINESS [None]
  - HALO VISION [None]
  - LOSS OF CONSCIOUSNESS [None]
  - PRODUCT QUALITY ISSUE [None]
  - REACTION TO DRUG EXCIPIENTS [None]
